FAERS Safety Report 4951848-6 (Version None)
Quarter: 2006Q1

REPORT INFORMATION
  Report Type: 
  Country: None (occurrence: None)
  Receive Date: 20060323
  Receipt Date: 20051004
  Transmission Date: 20060701
  Serious: Yes (Hospitalization, Other)
  Sender: FDA-Public Use
  Company Number: US-MERCK-0510USA03305

PATIENT
  Age: 67 Year
  Sex: Female
  Weight: 64 kg

DRUGS (7)
  1. VIOXX [Suspect]
     Route: 048
     Dates: start: 19990101, end: 20040801
  2. [THERAPY UNSPECIFIED] [Concomitant]
     Route: 065
  3. AVANDIA [Concomitant]
     Route: 065
  4. NEXIUM [Concomitant]
     Route: 065
  5. PROMETHAZINE [Concomitant]
     Route: 065
  6. TRAMADOLOR [Concomitant]
     Route: 065
  7. NEURONTIN [Concomitant]
     Route: 065

REACTIONS (4)
  - ANXIETY [None]
  - CARDIAC DISORDER [None]
  - CEREBROVASCULAR ACCIDENT [None]
  - MYOCARDIAL INFARCTION [None]
